FAERS Safety Report 16661883 (Version 2)
Quarter: 2019Q3

REPORT INFORMATION
  Report Type: Spontaneous
  Country: US (occurrence: US)
  Receive Date: 20190802
  Receipt Date: 20190905
  Transmission Date: 20191004
  Serious: Yes (Disabling, Other)
  Sender: FDA-Public Use
  Company Number: US-REGENERON PHARMACEUTICALS, INC.-2019-44562

PATIENT

DRUGS (2)
  1. EYLEA [Suspect]
     Active Substance: AFLIBERCEPT
     Indication: NEOVASCULAR AGE-RELATED MACULAR DEGENERATION
     Dosage: 2 MG, EVERY 4-9 WEEKS, OS
     Route: 031
     Dates: start: 20180709, end: 20190719
  2. EYLEA [Suspect]
     Active Substance: AFLIBERCEPT
     Dosage: LAST DOSE, EYE NOT SPECIFIED
     Route: 065
     Dates: start: 20190715, end: 20190715

REACTIONS (3)
  - Blindness transient [Recovered/Resolved]
  - Eye infection [Unknown]
  - Cataract [Unknown]

NARRATIVE: CASE EVENT DATE: 20190717
